FAERS Safety Report 11600748 (Version 1)
Quarter: 2015Q4

REPORT INFORMATION
  Report Type: Spontaneous
  Country: US (occurrence: US)
  Receive Date: 20151006
  Receipt Date: 20151006
  Transmission Date: 20160304
  Serious: No
  Sender: FDA-Public Use
  Company Number: US-AMGEN-USASP2015003336

PATIENT
  Age: 83 Year
  Sex: Male

DRUGS (3)
  1. CALCIUM CITRATE [Concomitant]
     Active Substance: CALCIUM CITRATE
     Dosage: 1000 MG, QD
  2. VITAMIN D                          /00107901/ [Concomitant]
     Active Substance: ERGOCALCIFEROL
  3. PROLIA [Suspect]
     Active Substance: DENOSUMAB
     Indication: OSTEOPOROSIS
     Dosage: UNK
     Route: 065
     Dates: start: 201411

REACTIONS (5)
  - Genital pain [Unknown]
  - Pain [Unknown]
  - Arthralgia [Unknown]
  - Groin pain [Unknown]
  - Scrotal pain [Unknown]

NARRATIVE: CASE EVENT DATE: 201411
